FAERS Safety Report 4382545-6 (Version None)
Quarter: 2004Q2

REPORT INFORMATION
  Report Type: 
  Country: None (occurrence: None)
  Receive Date: 20040617
  Receipt Date: 20040603
  Transmission Date: 20050107
  Serious: Yes (Life-Threatening, Hospitalization)
  Sender: FDA-Public Use
  Company Number: 2004-BP-02439NB

PATIENT
  Age: 80 Year
  Sex: Female

DRUGS (7)
  1. BI-SIFROL TABLETS (PRAMIPEXOLE DIHYDROCHLORIDE) (TA) [Suspect]
     Indication: PARKINSON'S DISEASE
     Dosage: 1 MG, PO
     Route: 048
     Dates: start: 20040308, end: 20040312
  2. SINEMET [Concomitant]
  3. NAUZELIN (DOMPERIDONE) [Concomitant]
  4. FAMOTIDINE [Concomitant]
  5. PURSENNID [Concomitant]
  6. LENDORM [Concomitant]
  7. MEVALOTIN [Concomitant]

REACTIONS (3)
  - ILEUS [None]
  - PNEUMONIA ASPIRATION [None]
  - VOMITING [None]
